FAERS Safety Report 13616283 (Version 1)
Quarter: 2017Q2

REPORT INFORMATION
  Report Type: Report from Study
  Country: JP (occurrence: JP)
  Receive Date: 20170606
  Receipt Date: 20170606
  Transmission Date: 20170830
  Serious: Yes (Hospitalization)
  Sender: FDA-Public Use
  Company Number: JP-ACTELION-A-CH2016-139652

PATIENT
  Age: 27 Year
  Sex: Female
  Weight: 49.5 kg

DRUGS (14)
  1. ADEMPAS [Suspect]
     Active Substance: RIOCIGUAT
     Dosage: 6 MG, UNK
     Route: 048
     Dates: start: 20150724, end: 20150726
  2. ADEMPAS [Suspect]
     Active Substance: RIOCIGUAT
     Dosage: 4.5 MG, UNK
     Route: 048
     Dates: start: 20150722, end: 20150723
  3. EPOPROSTENOL ACT [Suspect]
     Active Substance: EPOPROSTENOL
     Indication: PULMONARY ARTERIAL HYPERTENSION
     Dosage: 59 NG/KG, PER MIN
     Route: 042
     Dates: start: 20130801
  4. FUROSEMIDE. [Concomitant]
     Active Substance: FUROSEMIDE
     Indication: PRODUCT USED FOR UNKNOWN INDICATION
  5. EPOPROSTENOL ACT [Suspect]
     Active Substance: EPOPROSTENOL
     Dosage: 57 NG/KG, UNK
     Route: 042
     Dates: start: 20160112
  6. ADEMPAS [Suspect]
     Active Substance: RIOCIGUAT
     Indication: PULMONARY ARTERIAL HYPERTENSION
     Dosage: 1.5 MG, UNK
     Route: 048
     Dates: start: 20150717
  7. SILDENAFIL CITRATE. [Suspect]
     Active Substance: SILDENAFIL CITRATE
     Indication: PULMONARY ARTERIAL HYPERTENSION
     Dosage: 60 MG, OD
     Route: 048
     Dates: start: 20081002
  8. OXYGEN. [Concomitant]
     Active Substance: OXYGEN
     Indication: PRODUCT USED FOR UNKNOWN INDICATION
  9. EPOPROSTENOL ACT [Suspect]
     Active Substance: EPOPROSTENOL
     Dosage: 55.9 NG/KG, PER MIN
     Route: 042
     Dates: start: 20140605
  10. TRACLEER [Suspect]
     Active Substance: BOSENTAN
     Dosage: 62.5 MG, TID
     Route: 048
     Dates: start: 20140718
  11. BOSENTAN MONOHYDRATE [Concomitant]
     Active Substance: BOSENTAN
     Indication: PRODUCT USED FOR UNKNOWN INDICATION
  12. TRACLEER [Suspect]
     Active Substance: BOSENTAN
     Indication: PULMONARY ARTERIAL HYPERTENSION
     Dosage: 62.5 MG, BID
     Route: 048
     Dates: start: 20130308, end: 20140717
  13. ADEMPAS [Suspect]
     Active Substance: RIOCIGUAT
     Dosage: 3 MG, UNK
     Route: 048
     Dates: start: 20150719, end: 20150721
  14. ADEMPAS [Suspect]
     Active Substance: RIOCIGUAT
     Dosage: 7.5 MG, UNK
     Route: 048
     Dates: start: 20150727

REACTIONS (12)
  - Abortion induced [Unknown]
  - Device damage [Recovered/Resolved]
  - Catheter site granuloma [Recovered/Resolved]
  - Headache [Recovering/Resolving]
  - Pregnancy [Recovered/Resolved]
  - Generalised erythema [Recovered/Resolved]
  - Rash [Recovered/Resolved]
  - Uterine dilation and curettage [Unknown]
  - Intestinal obstruction [Recovered/Resolved]
  - Ovarian haemorrhage [Recovered/Resolved]
  - Catheter site related reaction [Recovering/Resolving]
  - Iron deficiency anaemia [Recovered/Resolved]

NARRATIVE: CASE EVENT DATE: 20130801
